FAERS Safety Report 6288878-0 (Version None)
Quarter: 2009Q3

REPORT INFORMATION
  Report Type: 
  Country: None (occurrence: None)
  Receive Date: 20090729
  Receipt Date: 20090717
  Transmission Date: 20100115
  Serious: No
  Sender: FDA-Public Use
  Company Number: US-ELI_LILLY_AND_COMPANY-US200907004719

PATIENT
  Age: 40 Year
  Sex: Female

DRUGS (4)
  1. CYMBALTA [Suspect]
     Dosage: 60 MG, UNK
     Dates: start: 20060118, end: 20090301
  2. AMBIEN CR [Concomitant]
  3. CALTRATE [Concomitant]
  4. WOMEN'S MULTI [Concomitant]
     Dosage: 1 D/F, DAILY (1/D)

REACTIONS (3)
  - CONSTIPATION [None]
  - HEPATIC ENZYME INCREASED [None]
  - NAUSEA [None]
